FAERS Safety Report 19471185 (Version 3)
Quarter: 2021Q3

REPORT INFORMATION
  Report Type: Spontaneous
  Country: NL (occurrence: NL)
  Receive Date: 20210629
  Receipt Date: 20210719
  Transmission Date: 20211014
  Serious: Yes (Life-Threatening, Hospitalization, Other)
  Sender: FDA-Public Use
  Company Number: NL-CELLTRION INC.-2021NL008573

PATIENT

DRUGS (3)
  1. RITUXIMAB (UNKNOWN) [Suspect]
     Active Substance: RITUXIMAB
     Indication: CHRONIC LYMPHOCYTIC LEUKAEMIA
     Dosage: UNK (1 COURSE)
     Route: 065
  2. CYCLOPHOSPHAMIDE. [Suspect]
     Active Substance: CYCLOPHOSPHAMIDE
     Indication: CHRONIC LYMPHOCYTIC LEUKAEMIA
     Dosage: UNK
     Route: 065
  3. FLUDARABINE PHOSPHATE. [Suspect]
     Active Substance: FLUDARABINE PHOSPHATE
     Indication: CHRONIC LYMPHOCYTIC LEUKAEMIA
     Dosage: UNK
     Route: 065

REACTIONS (8)
  - Tumour lysis syndrome [Recovered/Resolved]
  - Vomiting [Recovering/Resolving]
  - Hyperkalaemia [Recovered/Resolved]
  - Nausea [Recovering/Resolving]
  - Anuria [Recovering/Resolving]
  - Diarrhoea [Recovering/Resolving]
  - Atrial fibrillation [Recovered/Resolved]
  - Electrolyte imbalance [Recovered/Resolved]
